FAERS Safety Report 9199776 (Version 1)
Quarter: 2013Q1

REPORT INFORMATION
  Report Type: Spontaneous
  Country: US (occurrence: None)
  Receive Date: 20130328
  Receipt Date: 20130328
  Transmission Date: 20140127
  Serious: Yes (Life-Threatening, Hospitalization)
  Sender: FDA-Public Use
  Company Number: None

PATIENT
  Age: 46 Year
  Sex: Male
  Weight: 82.1 kg

DRUGS (6)
  1. VANCOMYCIN [Suspect]
     Indication: OSTEOMYELITIS
     Route: 042
     Dates: start: 20130317, end: 20130325
  2. ENOXAPARIN [Suspect]
     Route: 048
     Dates: start: 20130325, end: 20130327
  3. DAPTOMYCIN [Concomitant]
  4. CUBIST [Concomitant]
  5. ZOSYN [Concomitant]
  6. FLUCONAZOLE [Concomitant]

REACTIONS (3)
  - Neutropenia [None]
  - Thrombocytopenia [None]
  - White blood cell count decreased [None]
